FAERS Safety Report 5569028-2 (Version None)
Quarter: 2007Q4

REPORT INFORMATION
  Report Type: 
  Country: None (occurrence: None)
  Receive Date: 20071220
  Receipt Date: 20070628
  Transmission Date: 20080405
  Serious: No
  Sender: FDA-Public Use
  Company Number: A0651816A

PATIENT
  Age: 65 Year
  Sex: Male
  Weight: 117.7 kg

DRUGS (5)
  1. AVODART [Suspect]
     Indication: BENIGN PROSTATIC HYPERPLASIA
     Dosage: .5MG TWICE PER DAY
     Dates: start: 20060928, end: 20070319
  2. ZOCOR [Concomitant]
     Indication: BLOOD CHOLESTEROL INCREASED
     Dosage: 40MG IN THE MORNING
     Route: 048
     Dates: start: 20060928
  3. ASPIRIN [Concomitant]
     Route: 048
     Dates: start: 20060928
  4. MAXZIDE [Concomitant]
     Indication: HYPERTENSION
     Dosage: 1TAB PER DAY
     Route: 048
     Dates: start: 20050412
  5. SANCTURA [Concomitant]
     Dosage: 20MG TWICE PER DAY
     Route: 048
     Dates: start: 20060928

REACTIONS (1)
  - PENILE SIZE REDUCED [None]
